FAERS Safety Report 10961938 (Version 1)
Quarter: 2015Q1

REPORT INFORMATION
  Report Type: Report from Study
  Country: BR (occurrence: BR)
  Receive Date: 20150327
  Receipt Date: 20150327
  Transmission Date: 20150721
  Serious: Yes (Death, Hospitalization)
  Sender: FDA-Public Use
  Company Number: PHHY2015BR035863

PATIENT
  Sex: Female
  Weight: 53 kg

DRUGS (3)
  1. DIOVAN [Suspect]
     Active Substance: VALSARTAN
     Indication: HYPERTENSION
     Dosage: 1 DF (160 MG), QD (IN THE MORNING)
     Route: 065
     Dates: start: 2004, end: 20140325
  2. DIOVAN HCT [Suspect]
     Active Substance: HYDROCHLOROTHIAZIDE\VALSARTAN
     Indication: PRODUCT USED FOR UNKNOWN INDICATION
     Dosage: 1 DF, QD
     Route: 065
     Dates: start: 201304, end: 201403
  3. SIFROL [Suspect]
     Active Substance: PRAMIPEXOLE
     Indication: PRODUCT USED FOR UNKNOWN INDICATION
     Dosage: 0.5 DF, BID (IN THE MORNING AND AT NIGHT)
     Route: 065
     Dates: start: 2004, end: 2014

REACTIONS (6)
  - Tremor [Fatal]
  - Oesophageal stenosis [Fatal]
  - Parkinson^s disease [Fatal]
  - Hypotension [Unknown]
  - Depression [Fatal]
  - Underweight [Fatal]
